FAERS Safety Report 6118158-5 (Version None)
Quarter: 2009Q1

REPORT INFORMATION
  Report Type: 
  Country: None (occurrence: None)
  Receive Date: 20090314
  Receipt Date: 20090205
  Transmission Date: 20090719
  Serious: No
  Sender: FDA-Public Use
  Company Number: US-ABBOTT-09P-163-0502195-00

PATIENT
  Sex: Male
  Weight: 120.31 kg

DRUGS (1)
  1. HUMIRA [Suspect]
     Indication: RHEUMATOID ARTHRITIS
     Dates: start: 20080910

REACTIONS (3)
  - PYREXIA [None]
  - RHINORRHOEA [None]
  - THROAT IRRITATION [None]
